FAERS Safety Report 9323674 (Version 2)
Quarter: 2013Q2

REPORT INFORMATION
  Report Type: Spontaneous
  Country: JP (occurrence: JP)
  Receive Date: 20130603
  Receipt Date: 20130612
  Transmission Date: 20140414
  Serious: Yes (Hospitalization)
  Sender: FDA-Public Use
  Company Number: PHHY2013JP055012

PATIENT
  Age: 70 Year
  Sex: Female

DRUGS (4)
  1. COMTAN [Suspect]
     Indication: PARKINSON^S DISEASE
     Dosage: UNK UKN, UNK
     Route: 048
     Dates: start: 20130522, end: 20130524
  2. SYMMETREL [Concomitant]
     Indication: PARKINSON^S DISEASE
     Route: 048
  3. MENESIT [Concomitant]
     Indication: PARKINSON^S DISEASE
     Dosage: UNK UKN, UNK
     Route: 048
  4. REQUIP [Concomitant]
     Indication: PARKINSON^S DISEASE
     Dosage: UNK UKN, UNK
     Route: 048

REACTIONS (7)
  - Dyspnoea [Recovered/Resolved]
  - Sputum retention [Not Recovered/Not Resolved]
  - Dysphagia [Not Recovered/Not Resolved]
  - Hypokinesia [Unknown]
  - Speech disorder [Unknown]
  - Bedridden [None]
  - Parkinson^s disease [None]
